FAERS Safety Report 8312611-1 (Version None)
Quarter: 2012Q2

REPORT INFORMATION
  Report Type: 
  Country: None (occurrence: None)
  Receive Date: 20120424
  Receipt Date: 20120409
  Transmission Date: 20120825
  Serious: Yes (Hospitalization)
  Sender: FDA-Public Use
  Company Number: B0796635A

PATIENT
  Age: 59 Year
  Sex: Female

DRUGS (3)
  1. HYDROCORTISONE [Concomitant]
  2. FONDAPARINUX SODIUM [Suspect]
     Indication: HEPARIN-INDUCED THROMBOCYTOPENIA
     Dosage: 7. MG / PER DAY / SUBCUTANEOUS
     Route: 058
  3. FLUDROCORTISONE ACETATE [Concomitant]

REACTIONS (11)
  - BILIRUBIN CONJUGATED INCREASED [None]
  - ABDOMINAL ABSCESS [None]
  - BLOOD POTASSIUM DECREASED [None]
  - BLOOD BILIRUBIN INCREASED [None]
  - COLITIS [None]
  - ABSCESS BACTERIAL [None]
  - PULMONARY EMBOLISM [None]
  - HEADACHE [None]
  - SEROMA [None]
  - BLOOD ALBUMIN DECREASED [None]
  - VENA CAVA THROMBOSIS [None]
